FAERS Safety Report 13030784 (Version 1)
Quarter: 2016Q4

REPORT INFORMATION
  Report Type: Spontaneous
  Country: US (occurrence: US)
  Receive Date: 20161215
  Receipt Date: 20161215
  Transmission Date: 20170207
  Serious: No
  Sender: FDA-Public Use
  Company Number: US-ASTRAZENECA-2016SF25018

PATIENT
  Weight: 64.4 kg

DRUGS (3)
  1. TAGRISSO [Suspect]
     Active Substance: OSIMERTINIB
     Indication: NON-SMALL CELL LUNG CANCER
     Dosage: 80.0MG UNKNOWN
     Route: 048
  2. HYZAAR [Concomitant]
     Active Substance: HYDROCHLOROTHIAZIDE\LOSARTAN POTASSIUM
  3. NORVASC [Concomitant]
     Active Substance: AMLODIPINE BESYLATE

REACTIONS (1)
  - Syncope [Unknown]
